FAERS Safety Report 17054129 (Version 3)
Quarter: 2019Q4

REPORT INFORMATION
  Report Type: Report from Study
  Country: US (occurrence: US)
  Receive Date: 20191120
  Receipt Date: 20191223
  Transmission Date: 20200122
  Serious: Yes (Death)
  Sender: FDA-Public Use
  Company Number: NVSC2019US040087

PATIENT
  Age: 30 Year
  Sex: Male
  Weight: 86 kg

DRUGS (5)
  1. TEDIZOLID [Concomitant]
     Active Substance: TEDIZOLID
     Indication: MYCOBACTERIUM ABSCESSUS INFECTION
     Dosage: UNK
     Route: 065
     Dates: start: 20190903
  2. NO TREATMENT RECEIVED [Suspect]
     Active Substance: UNSPECIFIED INGREDIENT
     Indication: MYCOBACTERIUM ABSCESSUS INFECTION
     Route: 065
  3. IMIPENEM [Concomitant]
     Active Substance: IMIPENEM
     Indication: MYCOBACTERIUM ABSCESSUS INFECTION
     Dosage: UNK
     Route: 065
     Dates: start: 20190903
  4. AMICAKIN [Concomitant]
     Indication: MYCOBACTERIUM ABSCESSUS INFECTION
     Dosage: UNK
     Route: 065
     Dates: start: 20190701
  5. CEFTAROLINE [Concomitant]
     Active Substance: CEFTAROLINE
     Indication: MYCOBACTERIUM ABSCESSUS INFECTION
     Dosage: UNK
     Route: 065
     Dates: start: 20190903

REACTIONS (1)
  - Pulmonary embolism [Fatal]

NARRATIVE: CASE EVENT DATE: 20191112
